FAERS Safety Report 10056177 (Version 1)
Quarter: 2014Q2

REPORT INFORMATION
  Report Type: Spontaneous
  Country: PT (occurrence: PT)
  Receive Date: 20140403
  Receipt Date: 20140403
  Transmission Date: 20141212
  Serious: Yes (Death, Hospitalization)
  Sender: FDA-Public Use
  Company Number: PHHY2014PT038759

PATIENT
  Age: 33 Year
  Sex: Female
  Weight: 53 kg

DRUGS (8)
  1. AFINITOR [Suspect]
     Indication: INSULINOMA
     Route: 048
     Dates: start: 20131113, end: 20131206
  2. AFINITOR [Suspect]
     Indication: OFF LABEL USE
  3. QUETIAPINA [Concomitant]
     Indication: DEPRESSION
     Route: 048
     Dates: start: 20131126, end: 20131206
  4. METOCLOPRAMIDA [Concomitant]
     Indication: NAUSEA
     Dosage: INICIO DA TOMA H? MAIS DE 12 MESES.
     Route: 048
     Dates: end: 20131206
  5. //PREDNISOLONE [Concomitant]
     Indication: INSULINOMA
     Dosage: INICIO DA TOMA H? MAIS DE 12 MESES.
     Route: 048
     Dates: end: 20131206
  6. OCTREOTID [Concomitant]
     Indication: INSULINOMA
     Dosage: INICIO DA TOMA H? MAIS DE 12 MESES.
     Route: 030
     Dates: end: 201311
  7. FUROSEMIDA [Concomitant]
     Indication: OEDEMA
     Dosage: INICIO DA TOMA H? MAIS DE 12 MESES.
     Route: 048
     Dates: end: 20131206
  8. PAROXETINA [Concomitant]
     Indication: DEPRESSION
     Route: 048
     Dates: start: 20131126, end: 20131206

REACTIONS (11)
  - Bilirubin conjugated increased [Fatal]
  - Gamma-glutamyltransferase increased [Fatal]
  - Hepatic encephalopathy [Fatal]
  - Hepatotoxicity [Fatal]
  - Prothrombin time prolonged [Fatal]
  - Blood bilirubin increased [Fatal]
  - Hepatic failure [Fatal]
  - Condition aggravated [Fatal]
  - Alanine aminotransferase increased [Fatal]
  - Blood alkaline phosphatase increased [Fatal]
  - Aspartate aminotransferase increased [Fatal]
